FAERS Safety Report 24003505 (Version 1)
Quarter: 2024Q2

REPORT INFORMATION
  Report Type: Spontaneous
  Country: US (occurrence: US)
  Receive Date: 20240624
  Receipt Date: 20240624
  Transmission Date: 20240715
  Serious: No
  Sender: FDA-Public Use
  Company Number: US-UROGEN PHARMA LTD.-2024-UGN-000058

PATIENT

DRUGS (6)
  1. JELMYTO [Suspect]
     Active Substance: MITOMYCIN
     Indication: Transitional cell cancer of the renal pelvis and ureter
     Dosage: INSTILLATION
  2. JELMYTO [Suspect]
     Active Substance: MITOMYCIN
     Dosage: INSTILLATION
  3. JELMYTO [Suspect]
     Active Substance: MITOMYCIN
     Dosage: INSTILLATION
  4. JELMYTO [Suspect]
     Active Substance: MITOMYCIN
     Dosage: INSTILLATION
  5. JELMYTO [Suspect]
     Active Substance: MITOMYCIN
     Dosage: INSTILLATION
  6. JELMYTO [Suspect]
     Active Substance: MITOMYCIN
     Dosage: INSTILLATION
     Dates: start: 20240426, end: 20240426

REACTIONS (2)
  - Rash [Unknown]
  - Fatigue [Unknown]
